FAERS Safety Report 7189860-1 (Version None)
Quarter: 2010Q4

REPORT INFORMATION
  Report Type: 
  Country: None (occurrence: None)
  Receive Date: 20101223
  Receipt Date: 20101213
  Transmission Date: 20110411
  Serious: Yes (Hospitalization, Other)
  Sender: FDA-Public Use
  Company Number: US-ELI_LILLY_AND_COMPANY-US201012004305

PATIENT
  Sex: Female

DRUGS (9)
  1. FORTEO [Suspect]
     Indication: OSTEOPOROSIS
     Dosage: 20 UG, DAILY (1/D)
     Dates: start: 20100301
  2. POTASSIUM [Concomitant]
  3. MAGNESIUM [Concomitant]
  4. MULTAQ [Concomitant]
     Dosage: UNK, 2/D
  5. DARVOCET [Concomitant]
     Dosage: UNK, AS NEEDED
  6. OMEPRAZOLE [Concomitant]
     Dosage: UNK, DAILY (1/D)
  7. LOMOTIL [Concomitant]
  8. IMIPRAMINE HCL [Concomitant]
  9. BISOPROLOL [Concomitant]
     Dosage: UNK, 3/D

REACTIONS (5)
  - DECREASED ACTIVITY [None]
  - FALL [None]
  - FEELING ABNORMAL [None]
  - VAGINAL DISCHARGE [None]
  - VAGINAL HAEMORRHAGE [None]
